FAERS Safety Report 9759691 (Version 1)
Quarter: 2013Q4

REPORT INFORMATION
  Report Type: Spontaneous
  Country: US (occurrence: US)
  Receive Date: 20131216
  Receipt Date: 20131216
  Transmission Date: 20140711
  Serious: No
  Sender: FDA-Public Use
  Company Number: US-GILEAD-2010-0028639

PATIENT
  Sex: Male
  Weight: 87.09 kg

DRUGS (18)
  1. LETAIRIS [Suspect]
     Indication: PULMONARY ARTERIAL HYPERTENSION
     Route: 048
     Dates: start: 20100119
  2. METOPROLOL [Concomitant]
  3. TOPROL XL [Concomitant]
  4. AMIODARONE HCL [Concomitant]
  5. COUMADIN [Concomitant]
  6. ASPIRIN [Concomitant]
  7. LIPITOR [Concomitant]
  8. CELLCEPT [Concomitant]
  9. CYCLOSPORINE [Concomitant]
  10. AMOXICILLIN [Concomitant]
  11. LUMIGAN [Concomitant]
  12. AZOPT [Concomitant]
  13. MULTIVITAMIN [Concomitant]
  14. CALCIUM+D [Concomitant]
  15. VITAMIN C [Concomitant]
  16. REMERON [Concomitant]
  17. EFFEXOR [Concomitant]
  18. LUNESTA [Concomitant]

REACTIONS (2)
  - Hiccups [Unknown]
  - Dyspnoea [Unknown]
